FAERS Safety Report 10228784 (Version 1)
Quarter: 2014Q2

REPORT INFORMATION
  Report Type: Spontaneous
  Country: US (occurrence: US)
  Receive Date: 20140610
  Receipt Date: 20140610
  Transmission Date: 20141212
  Serious: Yes (Hospitalization)
  Sender: FDA-Public Use
  Company Number: US-ABBVIE-14K-163-1245408-00

PATIENT
  Sex: Female

DRUGS (7)
  1. LAMOTRIGINE [Suspect]
     Indication: EPILEPSY
     Route: 048
     Dates: start: 2003
  2. KEPPRA [Concomitant]
     Indication: EPILEPSY
     Dates: start: 2003
  3. DEPAKOTE [Suspect]
     Indication: PRODUCT USED FOR UNKNOWN INDICATION
  4. LAMICTAL [Interacting]
     Indication: EPILEPSY
     Route: 048
     Dates: start: 2003
  5. LAMICTAL [Interacting]
     Dates: start: 2014
  6. LAMICTAL [Interacting]
     Dates: start: 2014
  7. LAMICTAL [Interacting]
     Dosage: EXTRA 25MG DURING MENSTRUAL CYCLE
     Dates: start: 2014

REACTIONS (20)
  - Convulsion [Unknown]
  - Blindness transient [Recovered/Resolved]
  - Gastrointestinal inflammation [Unknown]
  - Oesophagitis [Unknown]
  - Haematemesis [Unknown]
  - Head injury [Unknown]
  - Concussion [Unknown]
  - Proteinuria [Recovered/Resolved]
  - Ketonuria [Recovered/Resolved]
  - Toxicity to various agents [Unknown]
  - Panic reaction [Unknown]
  - Formication [Unknown]
  - Rash pruritic [Unknown]
  - Rash papular [Unknown]
  - Fall [Unknown]
  - Drug interaction [Unknown]
  - Rash papular [Unknown]
  - Formication [Unknown]
  - Rash pruritic [Unknown]
  - Convulsion [Unknown]
